FAERS Safety Report 9241777 (Version 2)
Quarter: 2013Q3

REPORT INFORMATION
  Report Type: Spontaneous
  Country: US (occurrence: US)
  Receive Date: 20130419
  Receipt Date: 20130807
  Transmission Date: 20140515
  Serious: Yes (Disabling, Other)
  Sender: FDA-Public Use
  Company Number: US-JNJFOC-20130406475

PATIENT
  Sex: Male

DRUGS (4)
  1. REMICADE [Suspect]
     Indication: CROHN^S DISEASE
     Route: 042
     Dates: start: 20130305
  2. REMICADE [Suspect]
     Indication: CROHN^S DISEASE
     Route: 042
     Dates: start: 201111, end: 20130305
  3. AZATHIOPRINE [Concomitant]
     Indication: CROHN^S DISEASE
     Route: 048
     Dates: start: 20130502
  4. PREDNISONE [Concomitant]
     Indication: CROHN^S DISEASE
     Dosage: TAPERING DOSE
     Route: 048
     Dates: start: 20130502

REACTIONS (6)
  - Migraine [Recovering/Resolving]
  - Diastolic dysfunction [Unknown]
  - Left ventricular hypertrophy [Unknown]
  - Crohn^s disease [Unknown]
  - Fatigue [Not Recovered/Not Resolved]
  - Dyspnoea [Recovering/Resolving]
